FAERS Safety Report 14332515 (Version 2)
Quarter: 2018Q1

REPORT INFORMATION
  Report Type: Spontaneous
  Country: FR (occurrence: FR)
  Receive Date: 20171228
  Receipt Date: 20180108
  Transmission Date: 20180509
  Serious: Yes (Other)
  Sender: FDA-Public Use
  Company Number: PHHY2017FR190967

PATIENT
  Sex: Female

DRUGS (1)
  1. GILENYA [Suspect]
     Active Substance: FINGOLIMOD HYDROCHLORIDE
     Indication: MULTIPLE SCLEROSIS
     Dosage: UNK UNK, QD
     Route: 065
     Dates: start: 20150120

REACTIONS (9)
  - Suicidal ideation [Unknown]
  - Fatigue [Unknown]
  - Scab [Unknown]
  - Hypertension [Unknown]
  - Eczema [Unknown]
  - Back pain [Unknown]
  - Hyperhidrosis [Unknown]
  - Sleep disorder [Unknown]
  - Irritability [Unknown]

NARRATIVE: CASE EVENT DATE: 201710
